FAERS Safety Report 6816587-5 (Version None)
Quarter: 2010Q2

REPORT INFORMATION
  Report Type: 
  Country: None (occurrence: None)
  Receive Date: 20100630
  Receipt Date: 20100621
  Transmission Date: 20101027
  Serious: Yes (Life-Threatening)
  Sender: FDA-Public Use
  Company Number: 2010US002212

PATIENT
  Age: 70 Year
  Sex: Male

DRUGS (5)
  1. AMBISOME [Suspect]
     Indication: DRUG USE FOR UNKNOWN INDICATION
     Dosage: 200 MG, UID/QD, IV NOS
     Route: 042
     Dates: start: 20100603, end: 20100617
  2. MEROPENEM [Concomitant]
  3. CYTARABINE [Concomitant]
  4. ACLARUBICIN HYDROCHLORIDE (ACLARUBICIN HYDROCHLORIDE) [Concomitant]
  5. GRANULOCYTE COLONG STIMULATING FACTOR (GRANULOCYTE COLONY STIMULATING [Concomitant]

REACTIONS (7)
  - APPARENT LIFE THREATENING EVENT [None]
  - CARDIO-RESPIRATORY ARREST [None]
  - HEART RATE INCREASED [None]
  - HYPOKALAEMIA [None]
  - LOSS OF CONSCIOUSNESS [None]
  - PANCYTOPENIA [None]
  - VENTRICULAR FIBRILLATION [None]
